FAERS Safety Report 6997628-1 (Version None)
Quarter: 2010Q3

REPORT INFORMATION
  Report Type: 
  Country: None (occurrence: None)
  Receive Date: 20100918
  Receipt Date: 20091117
  Transmission Date: 20110219
  Serious: No
  Sender: FDA-Public Use
  Company Number: US-WYE-H12222709

PATIENT
  Sex: Female

DRUGS (1)
  1. NORPLANT SYSTEM [Suspect]
     Indication: CONTRACEPTION
     Dosage: 6 CAPSULES
     Route: 023
     Dates: start: 19920101, end: 19970101

REACTIONS (1)
  - INFERTILITY [None]
